APPROVED DRUG PRODUCT: DIHYDROERGOTAMINE MESYLATE
Active Ingredient: DIHYDROERGOTAMINE MESYLATE
Strength: 1MG/ML
Dosage Form/Route: INJECTABLE;INJECTION
Application: A216747 | Product #001
Applicant: BAXTER HEALTHCARE CORP
Approved: Jan 7, 2025 | RLD: No | RS: No | Type: DISCN